FAERS Safety Report 21761690 (Version 1)
Quarter: 2022Q4

REPORT INFORMATION
  Report Type: Report from Study
  Country: US (occurrence: US)
  Receive Date: 20221221
  Receipt Date: 20221221
  Transmission Date: 20230112
  Serious: No
  Sender: FDA-Public Use
  Company Number: US-ABBVIE-4245295

PATIENT
  Sex: Female

DRUGS (1)
  1. IMBRUVICA [Suspect]
     Active Substance: IBRUTINIB
     Indication: Diffuse large B-cell lymphoma
     Route: 048
     Dates: start: 202110

REACTIONS (9)
  - Heart rate increased [Unknown]
  - Diarrhoea [Unknown]
  - Anxiety [Unknown]
  - Chills [Unknown]
  - Fatigue [Unknown]
  - Mobility decreased [Unknown]
  - Neuropathy peripheral [Unknown]
  - Dizziness [Unknown]
  - Somnolence [Unknown]
